FAERS Safety Report 8483637 (Version 4)
Quarter: 2012Q4

REPORT INFORMATION
  Report Type: Report from Study
  Country: US (occurrence: US)
  Receive Date: 20120329
  Receipt Date: 20120910
  Transmission Date: 20130627
  Serious: Yes (Hospitalization, Congenital Anomaly)
  Sender: FDA-Public Use
  Company Number: US-ROCHE-1053122

PATIENT
  Age: 12 Month
  Sex: Male

DRUGS (6)
  1. OMALIZUMAB [Suspect]
     Indication: PRODUCT USED FOR UNKNOWN INDICATION
     Route: 064
  2. OMALIZUMAB [Suspect]
     Route: 063
  3. PREVACID [Concomitant]
     Route: 048
  4. MIRALAX [Concomitant]
     Indication: CONSTIPATION
     Route: 048
  5. AUGMENTIN [Concomitant]
  6. TYLENOL [Concomitant]

REACTIONS (3)
  - Laryngeal cleft [Recovered/Resolved]
  - Bronchiolitis [Recovered/Resolved]
  - Maternal exposure timing unspecified [Unknown]
